FAERS Safety Report 21083583 (Version 1)
Quarter: 2022Q3

REPORT INFORMATION
  Report Type: Spontaneous
  Country: US (occurrence: None)
  Receive Date: 20220714
  Receipt Date: 20220714
  Transmission Date: 20221027
  Serious: No
  Sender: FDA-Public Use
  Company Number: None

PATIENT
  Sex: Female

DRUGS (1)
  1. STELARA [Suspect]
     Active Substance: USTEKINUMAB
     Indication: Colitis
     Dosage: 90MG EVERY 8 WEEKS SQ?
     Route: 058
     Dates: start: 20210816

REACTIONS (2)
  - Drug ineffective [None]
  - Therapy cessation [None]
